FAERS Safety Report 17752539 (Version 1)
Quarter: 2020Q2

REPORT INFORMATION
  Report Type: Report from Study
  Country: PL (occurrence: PL)
  Receive Date: 20200506
  Receipt Date: 20200506
  Transmission Date: 20200714
  Serious: Yes (Life-Threatening, Hospitalization, Disabling, Other)
  Sender: FDA-Public Use
  Company Number: PL-ASTRAZENECA-2020SE27702

PATIENT
  Age: 24833 Day
  Sex: Female

DRUGS (22)
  1. NEOPARIN [Concomitant]
     Active Substance: ENOXAPARIN SODIUM
     Indication: MESENTERIC VEIN THROMBOSIS
     Route: 058
     Dates: start: 20191014
  2. DURVALUMAB. [Suspect]
     Active Substance: DURVALUMAB
     Indication: BLADDER CANCER
     Route: 042
     Dates: start: 20200207, end: 20200207
  3. GEMCITABINE. [Suspect]
     Active Substance: GEMCITABINE
     Indication: BLADDER CANCER
     Dosage: 1000 MG/M2
     Route: 065
     Dates: start: 20190711, end: 20190711
  4. GEMCITABINE. [Suspect]
     Active Substance: GEMCITABINE
     Indication: BLADDER CANCER
     Dosage: 1000 MG/M2
     Route: 065
     Dates: start: 20190812, end: 20190812
  5. DURVALUMAB. [Suspect]
     Active Substance: DURVALUMAB
     Indication: BLADDER CANCER
     Route: 042
     Dates: start: 20190805, end: 20190805
  6. GEMCITABINE. [Suspect]
     Active Substance: GEMCITABINE
     Indication: BLADDER CANCER
     Dosage: 1000 MG/M2
     Route: 065
     Dates: start: 20190826, end: 20190826
  7. GEMCITABINE. [Suspect]
     Active Substance: GEMCITABINE
     Indication: BLADDER CANCER
     Dosage: 1000 MG/M2
     Route: 065
     Dates: start: 20190916, end: 20190916
  8. CISPLATIN. [Suspect]
     Active Substance: CISPLATIN
     Indication: BLADDER CANCER
     Dosage: 70 MG/M2
     Route: 065
     Dates: start: 20190805, end: 20190805
  9. GEMCITABINE. [Suspect]
     Active Substance: GEMCITABINE
     Indication: BLADDER CANCER
     Dosage: 1000 MG/M2
     Route: 065
     Dates: start: 20190719, end: 20190719
  10. GEMCITABINE. [Suspect]
     Active Substance: GEMCITABINE
     Indication: BLADDER CANCER
     Dosage: 1000 MG/M2
     Route: 065
     Dates: start: 20190805, end: 20190805
  11. STUDY PROCEDURE [Suspect]
     Active Substance: INVESTIGATIONAL PRODUCT
     Indication: BLADDER CANCER
     Dosage: RADICAL CYSTECTOMY
     Route: 065
     Dates: start: 20191118
  12. DURVALUMAB. [Suspect]
     Active Substance: DURVALUMAB
     Indication: BLADDER CANCER
     Route: 042
     Dates: start: 20200113, end: 20200113
  13. DURVALUMAB. [Suspect]
     Active Substance: DURVALUMAB
     Indication: BLADDER CANCER
     Route: 042
     Dates: start: 20190711, end: 20190711
  14. DURVALUMAB. [Suspect]
     Active Substance: DURVALUMAB
     Indication: BLADDER CANCER
     Route: 042
     Dates: start: 20190916, end: 20190916
  15. GEMCITABINE. [Suspect]
     Active Substance: GEMCITABINE
     Indication: BLADDER CANCER
     Dosage: 1000 MG/M2
     Route: 065
     Dates: start: 20190923, end: 20190923
  16. CISPLATIN. [Suspect]
     Active Substance: CISPLATIN
     Indication: BLADDER CANCER
     Dosage: 70 MG/M2
     Route: 065
     Dates: start: 20190711, end: 20190711
  17. CISPLATIN. [Suspect]
     Active Substance: CISPLATIN
     Indication: BLADDER CANCER
     Dosage: 70 MG/M2
     Route: 065
     Dates: start: 20190826, end: 20190826
  18. AUGMENTIN [Concomitant]
     Active Substance: AMOXICILLIN\CLAVULANATE POTASSIUM
     Indication: MESENTERIC VEIN THROMBOSIS
     Route: 058
     Dates: start: 20191014
  19. DURVALUMAB. [Suspect]
     Active Substance: DURVALUMAB
     Indication: BLADDER CANCER
     Route: 042
     Dates: start: 20190826, end: 20190826
  20. GEMCITABINE. [Suspect]
     Active Substance: GEMCITABINE
     Indication: BLADDER CANCER
     Dosage: 1000 MG/M2
     Route: 065
     Dates: start: 20190902, end: 20190902
  21. CISPLATIN. [Suspect]
     Active Substance: CISPLATIN
     Indication: BLADDER CANCER
     Dosage: 70 MG/M2
     Route: 065
     Dates: start: 20190916, end: 20190916
  22. POLTRAM COMBO [Concomitant]
     Active Substance: ACETAMINOPHEN\TRAMADOL HYDROCHLORIDE
     Indication: PAIN IN EXTREMITY
     Route: 048
     Dates: start: 20190902

REACTIONS (1)
  - Intestinal obstruction [Recovered/Resolved with Sequelae]

NARRATIVE: CASE EVENT DATE: 20200217
